FAERS Safety Report 18315675 (Version 7)
Quarter: 2021Q4

REPORT INFORMATION
  Report Type: Report from Study
  Country: FR (occurrence: FR)
  Receive Date: 20200926
  Receipt Date: 20211019
  Transmission Date: 20220303
  Serious: Yes (Death, Hospitalization)
  Sender: FDA-Public Use
  Company Number: NVSC2020FR261992

PATIENT
  Sex: Female
  Weight: 72 kg

DRUGS (6)
  1. ELTROMBOPAG [Suspect]
     Active Substance: ELTROMBOPAG
     Indication: Immune thrombocytopenia
     Dosage: 25 MG, QD
     Route: 048
     Dates: start: 20200113, end: 202002
  2. ELTROMBOPAG [Suspect]
     Active Substance: ELTROMBOPAG
     Dosage: 25 MG, QD
     Route: 048
     Dates: start: 202003
  3. CLOTIAZEPAM [Suspect]
     Active Substance: CLOTIAZEPAM
     Indication: Anxiolytic therapy
     Dosage: UNK
     Route: 048
  4. CLOTIAZEPAM [Suspect]
     Active Substance: CLOTIAZEPAM
     Dosage: 2014 OR 2015 QD (5 MG IN THE MORNING AND NOON, 10 MG IN THE EVENING) (STARTED IN 2014 OR 2015)
     Route: 048
  5. FUROSEMIDE [Concomitant]
     Active Substance: FUROSEMIDE
     Indication: Pulmonary hypertension
     Dosage: (40 MG MORNING AND 20 MG  NOON)
     Route: 048
     Dates: start: 20130509
  6. FUROSEMIDE [Concomitant]
     Active Substance: FUROSEMIDE
     Dosage: QD (40 MG MORNING AND 20 MG NOON)
     Route: 048
     Dates: start: 20200509

REACTIONS (2)
  - Death [Fatal]
  - Cardiac failure [Unknown]

NARRATIVE: CASE EVENT DATE: 20200701
